APPROVED DRUG PRODUCT: VITAMIN A
Active Ingredient: VITAMIN A
Strength: 50,000 IU
Dosage Form/Route: CAPSULE;ORAL
Application: A083134 | Product #001
Applicant: EVERYLIFE
Approved: Approved Prior to Jan 1, 1982 | RLD: No | RS: No | Type: DISCN